FAERS Safety Report 5500952-2 (Version None)
Quarter: 2007Q4

REPORT INFORMATION
  Report Type: 
  Country: None (occurrence: None)
  Receive Date: 20071029
  Receipt Date: 20071016
  Transmission Date: 20080405
  Serious: Yes (Hospitalization)
  Sender: FDA-Public Use
  Company Number: PHHO2007US07517

PATIENT
  Age: 27 Year
  Sex: Male
  Weight: 75.7 kg

DRUGS (2)
  1. CERTICAN [Suspect]
     Indication: RENAL TRANSPLANT
     Dosage: 0.75 MG, Q12H
     Route: 048
     Dates: start: 20070418, end: 20070503
  2. NEORAL [Suspect]
     Indication: RENAL TRANSPLANT
     Route: 048

REACTIONS (7)
  - ABDOMINAL DISTENSION [None]
  - BLOOD CREATININE INCREASED [None]
  - GRAFT THROMBOSIS [None]
  - HYPERTENSION [None]
  - LEUKOPENIA [None]
  - NEPHROPATHY TOXIC [None]
  - PNEUMONIA ASPIRATION [None]
